FAERS Safety Report 4354918-9 (Version None)
Quarter: 2004Q2

REPORT INFORMATION
  Report Type: 
  Country: None (occurrence: None)
  Receive Date: 20040505
  Receipt Date: 20040426
  Transmission Date: 20050107
  Serious: Yes (Other)
  Sender: FDA-Public Use
  Company Number: 7906

PATIENT
  Age: 36 Year
  Sex: Female

DRUGS (5)
  1. VINBLASTINE SULFATE [Suspect]
     Indication: METASTATIC MALIGNANT MELANOMA
  2. CISPLATIN [Suspect]
     Indication: METASTATIC MALIGNANT MELANOMA
  3. DACARBAZINE [Suspect]
     Indication: METASTATIC MALIGNANT MELANOMA
  4. INTERFERON-ALFA [Suspect]
     Indication: METASTATIC MALIGNANT MELANOMA
  5. PROLEUKIN [Suspect]
     Indication: METASTATIC MALIGNANT MELANOMA

REACTIONS (8)
  - DISEASE PROGRESSION [None]
  - HAEMODIALYSIS [None]
  - HEPATIC ENCEPHALOPATHY [None]
  - MALIGNANT MELANOMA [None]
  - MELANOSIS [None]
  - PANCYTOPENIA [None]
  - RENAL FAILURE [None]
  - TUMOUR LYSIS SYNDROME [None]
